FAERS Safety Report 24423540 (Version 1)
Quarter: 2024Q4

REPORT INFORMATION
  Report Type: Spontaneous
  Country: US (occurrence: US)
  Receive Date: 20241010
  Receipt Date: 20241010
  Transmission Date: 20250115
  Serious: No
  Sender: MYLAN
  Company Number: US-MYLANLABS-2024M1087726

PATIENT
  Sex: Male

DRUGS (4)
  1. TYRVAYA [Suspect]
     Active Substance: VARENICLINE TARTRATE
     Indication: Rosacea
     Dosage: 0.03 MILLIGRAM, BID(1 PUFF INTO EACH NOSTRIL TWICE A DAY)
     Route: 045
     Dates: start: 20240715, end: 20240926
  2. TYRVAYA [Suspect]
     Active Substance: VARENICLINE TARTRATE
     Indication: Dry eye
  3. XIIDRA [Concomitant]
     Active Substance: LIFITEGRAST
     Indication: Dry eye
     Dosage: UNK
     Route: 065
  4. CLARITIN [Concomitant]
     Active Substance: LORATADINE
     Indication: Hypersensitivity
     Route: 065

REACTIONS (7)
  - Burning sensation [Unknown]
  - Throat irritation [Unknown]
  - Cough [Unknown]
  - Product delivery mechanism issue [Unknown]
  - Drug ineffective [Unknown]
  - Off label use [Unknown]
  - Product storage error [Unknown]
